FAERS Safety Report 15764930 (Version 1)
Quarter: 2018Q4

REPORT INFORMATION
  Report Type: Spontaneous
  Country: US (occurrence: US)
  Receive Date: 20181221
  Receipt Date: 20181221
  Transmission Date: 20190205
  Serious: No
  Sender: FDA-Public Use
  Company Number: None

PATIENT
  Age: 44 Year
  Sex: Female
  Weight: 78.93 kg

DRUGS (1)
  1. TALTZ [Suspect]
     Active Substance: IXEKIZUMAB
     Indication: PSORIASIS
     Dosage: INJECT 160MG (2 SYRINGES) SUBCUTANEOUSLY AT WEEK 0?THEN 80MG (1 SYRINGE) AT WEEK 2 AS DIRECTED?
     Route: 058
     Dates: start: 201811

REACTIONS (6)
  - Injection site erythema [None]
  - Injection site pruritus [None]
  - Injection site warmth [None]
  - Euphoric mood [None]
  - Hypersensitivity [None]
  - Injection site swelling [None]
